FAERS Safety Report 9705695 (Version 2)
Quarter: 2013Q4

REPORT INFORMATION
  Report Type: Spontaneous
  Country: US (occurrence: US)
  Receive Date: 20131122
  Receipt Date: 20131122
  Transmission Date: 20140711
  Serious: No
  Sender: FDA-Public Use
  Company Number: US-GILEAD-2008-0017033

PATIENT
  Age: 45 Year
  Sex: Female

DRUGS (8)
  1. LETAIRIS [Suspect]
     Dates: start: 200806
  2. LETAIRIS [Suspect]
     Dates: start: 2007, end: 200806
  3. FUROSEMIDE [Concomitant]
  4. SPIRONOLACTONE [Concomitant]
  5. POTASSIUM [Concomitant]
  6. HYDROCODONE [Concomitant]
  7. LACTULOSE [Concomitant]
  8. HYDROXYZINE [Concomitant]

REACTIONS (3)
  - Vaginal haemorrhage [None]
  - Product quality issue [None]
  - Product taste abnormal [None]
